FAERS Safety Report 4702291-6 (Version None)
Quarter: 2005Q2

REPORT INFORMATION
  Report Type: 
  Country: None (occurrence: None)
  Receive Date: 20050628
  Receipt Date: 20050628
  Transmission Date: 20051028
  Serious: Yes (Disabling, Other)
  Sender: FDA-Public Use
  Company Number: None

PATIENT
  Age: 53 Year
  Sex: Female
  Weight: 49.8957 kg

DRUGS (1)
  1. BENOQUIN 20% [Suspect]
     Indication: SKIN HYPERPIGMENTATION
     Dosage: ONE    APPLICATION   TOPICAL
     Route: 061
     Dates: start: 20040202, end: 20040203

REACTIONS (11)
  - ANXIETY [None]
  - BURNING SENSATION [None]
  - DRUG HYPERSENSITIVITY [None]
  - HYPERAESTHESIA [None]
  - OCHRONOSIS [None]
  - PHOTOSENSITIVITY REACTION [None]
  - POST INFLAMMATORY PIGMENTATION CHANGE [None]
  - PRURITUS [None]
  - SKIN ATROPHY [None]
  - SOCIAL AVOIDANT BEHAVIOUR [None]
  - STRESS [None]
